FAERS Safety Report 5969375-6 (Version None)
Quarter: 2008Q4

REPORT INFORMATION
  Report Type: 
  Country: None (occurrence: None)
  Receive Date: 20081126
  Receipt Date: 20081119
  Transmission Date: 20090506
  Serious: Yes (Hospitalization)
  Sender: FDA-Public Use
  Company Number: US-WATSON-2008-06872

PATIENT
  Age: 50 Year
  Sex: Female

DRUGS (1)
  1. DOBUTAMINE HYDROCHLORIDE (WATSON LABORATORIES) [Suspect]
     Indication: CARDIAC STRESS TEST
     Dosage: 20 MG/KG/MIN
     Route: 042

REACTIONS (1)
  - ATRIOVENTRICULAR BLOCK COMPLETE [None]
